FAERS Safety Report 6728692-2 (Version None)
Quarter: 2010Q2

REPORT INFORMATION
  Report Type: 
  Country: None (occurrence: None)
  Receive Date: 20100517
  Receipt Date: 20100506
  Transmission Date: 20101027
  Serious: Yes (Death)
  Sender: FDA-Public Use
  Company Number: GR-GILEAD-E2B_00000704

PATIENT
  Age: 65 Year
  Sex: Male

DRUGS (7)
  1. AMBRISENTAN [Suspect]
     Indication: PULMONARY HYPERTENSION
     Dosage: 5MG PER DAY
     Route: 065
     Dates: start: 20100218, end: 20100320
  2. AMBRISENTAN [Suspect]
     Indication: RIGHT VENTRICULAR FAILURE
  3. ASPIRIN [Concomitant]
  4. ATORVASTATIN [Concomitant]
  5. FUROSEMIDE [Concomitant]
  6. SPIRONOLACTONE [Concomitant]
  7. PREZOLON [Concomitant]
     Dosage: 15MG PER DAY
     Route: 065

REACTIONS (2)
  - PULMONARY HYPERTENSION [None]
  - RIGHT VENTRICULAR FAILURE [None]
